FAERS Safety Report 8017696-8 (Version None)
Quarter: 2012Q1

REPORT INFORMATION
  Report Type: 
  Country: None (occurrence: None)
  Receive Date: 20120103
  Receipt Date: 20111221
  Transmission Date: 20120608
  Serious: Yes (Other)
  Sender: FDA-Public Use
  Company Number: CA-JNJFOC-20111212218

PATIENT
  Sex: Female
  Weight: 65.7 kg

DRUGS (8)
  1. PANTOPRAZOLE [Concomitant]
  2. VENLAFAXINE HCL EXTENDED-RELEASE [Concomitant]
  3. ADVAIR DISKUS 100/50 [Concomitant]
  4. ALENDRONATE SODIUM [Concomitant]
  5. ATORVASTATIN [Concomitant]
  6. REMICADE [Suspect]
     Indication: CROHN'S DISEASE
     Route: 042
  7. HYDROCHLOROTHIAZIDE [Concomitant]
  8. LORAZEPAM [Concomitant]

REACTIONS (3)
  - MUSCULOSKELETAL PAIN [None]
  - CHEST PAIN [None]
  - RESPIRATORY TRACT INFECTION [None]
